FAERS Safety Report 7346555-9 (Version None)
Quarter: 2011Q1

REPORT INFORMATION
  Report Type: 
  Country: None (occurrence: None)
  Receive Date: 20110311
  Receipt Date: 20110228
  Transmission Date: 20110831
  Serious: Yes (Other)
  Sender: FDA-Public Use
  Company Number: US-SANOFI-AVENTIS-2011SA013179

PATIENT
  Sex: Female

DRUGS (2)
  1. MULTAQ [Suspect]
     Route: 065
  2. DABIGATRAN [Suspect]
     Route: 065

REACTIONS (3)
  - ARRHYTHMIA [None]
  - GASTROINTESTINAL HAEMORRHAGE [None]
  - BLOOD CREATININE INCREASED [None]
